FAERS Safety Report 9485379 (Version 1)
Quarter: 2013Q3

REPORT INFORMATION
  Report Type: Spontaneous
  Country: US (occurrence: US)
  Receive Date: 20130828
  Receipt Date: 20130828
  Transmission Date: 20140515
  Serious: No
  Sender: FDA-Public Use
  Company Number: US-009507513-1308USA009916

PATIENT
  Age: 23 Year
  Sex: Female
  Weight: 45.81 kg

DRUGS (1)
  1. NEXPLANON [Suspect]
     Indication: CONTRACEPTION
     Dosage: UNK
     Route: 030
     Dates: start: 20130409

REACTIONS (4)
  - Medical device complication [Unknown]
  - Device difficult to use [Not Recovered/Not Resolved]
  - Incorrect route of drug administration [Unknown]
  - Device deployment issue [Unknown]
